FAERS Safety Report 13867619 (Version 2)
Quarter: 2017Q4

REPORT INFORMATION
  Report Type: Spontaneous
  Country: US (occurrence: US)
  Receive Date: 20170814
  Receipt Date: 20171114
  Transmission Date: 20180320
  Serious: No
  Sender: FDA-Public Use
  Company Number: US-AMGEN-USASP2017086996

PATIENT

DRUGS (1)
  1. PARSABIV [Suspect]
     Active Substance: ETELCALCETIDE HYDROCHLORIDE
     Indication: BLOOD CALCIUM INCREASED
     Dosage: UNK
     Route: 065

REACTIONS (2)
  - Blood parathyroid hormone increased [Unknown]
  - Off label use [Unknown]
